FAERS Safety Report 6218066-5 (Version None)
Quarter: 2009Q2

REPORT INFORMATION
  Report Type: 
  Country: None (occurrence: None)
  Receive Date: 20090608
  Receipt Date: 20090603
  Transmission Date: 20091009
  Serious: Yes (Death)
  Sender: FDA-Public Use
  Company Number: IT-ASTRAZENECA-2009SE02008

PATIENT
  Age: 14123 Day
  Sex: Male

DRUGS (10)
  1. SEROQUEL [Suspect]
     Indication: PSYCHOTIC DISORDER
     Route: 048
     Dates: start: 20090513, end: 20090517
  2. SEROQUEL [Suspect]
     Route: 048
     Dates: start: 20090518, end: 20090518
  3. SEROQUEL [Suspect]
     Route: 048
     Dates: start: 20090519, end: 20090519
  4. PROPOFOL [Concomitant]
     Route: 042
     Dates: start: 20090511, end: 20090515
  5. IPNOVEL [Concomitant]
     Route: 042
     Dates: start: 20090511, end: 20090523
  6. BETA BLOKKERS [Concomitant]
     Indication: HYPERTENSION
  7. SARTANES [Concomitant]
     Indication: HYPERTENSION
  8. FLUFENAZINE DEPOT [Concomitant]
     Indication: PSYCHOTIC DISORDER
  9. CLOTIAPINE [Concomitant]
     Indication: PSYCHOTIC DISORDER
  10. CLONAZEPAM [Concomitant]
     Indication: PSYCHOTIC DISORDER

REACTIONS (2)
  - HYPERTHERMIA [None]
  - PYREXIA [None]
